FAERS Safety Report 20636559 (Version 1)
Quarter: 2022Q1

REPORT INFORMATION
  Report Type: Spontaneous
  Country: US (occurrence: None)
  Receive Date: 20220324
  Receipt Date: 20220324
  Transmission Date: 20220423
  Serious: No
  Sender: FDA-Public Use
  Company Number: None

PATIENT
  Age: 70 Year
  Sex: Female
  Weight: 109.8 kg

DRUGS (19)
  1. CAPECITABINE [Suspect]
     Active Substance: CAPECITABINE
     Indication: Colon cancer
     Dosage: FREQUENCY : TWICE A DAY;?
     Route: 048
     Dates: start: 20210408
  2. ELIQUIS [Concomitant]
     Active Substance: APIXABAN
  3. ATORVASTATIN CALCIUM [Concomitant]
     Active Substance: ATORVASTATIN CALCIUM
  4. BIMATOPROST OP [Concomitant]
  5. BRIMONIDINE TARTRATE [Concomitant]
     Active Substance: BRIMONIDINE TARTRATE
  6. ATROPINE\DIPHENOXYLATE [Concomitant]
     Active Substance: ATROPINE\DIPHENOXYLATE
  7. FAMOTIDINE [Concomitant]
     Active Substance: FAMOTIDINE
  8. FIBER [Concomitant]
     Active Substance: PSYLLIUM HUSK
  9. FOLIC ACID [Concomitant]
     Active Substance: FOLIC ACID
  10. ACETAMINOPHEN\HYDROCODONE [Concomitant]
     Active Substance: ACETAMINOPHEN\HYDROCODONE
  11. MAGNESIUM OXIDE 400MG [Concomitant]
     Active Substance: MAGNESIUM OXIDE
  12. METOPROLOL TARTRATE [Concomitant]
     Active Substance: METOPROLOL TARTRATE
  13. VITAMINS [Concomitant]
     Active Substance: VITAMINS
  14. ONDANSETRON HCI 8MG [Concomitant]
  15. PENTOXIFYLLINE ER 400MG [Concomitant]
  16. PROMETHAZINE HCI 12.5MG [Concomitant]
  17. VITAMIN B6 100MG [Concomitant]
  18. UBIDECARENONE 100MG [Concomitant]
  19. LYRICA [Concomitant]
     Active Substance: PREGABALIN

REACTIONS (1)
  - Therapeutic product effect decreased [None]

NARRATIVE: CASE EVENT DATE: 20220324
